FAERS Safety Report 23919985 (Version 1)
Quarter: 2024Q2

REPORT INFORMATION
  Report Type: Spontaneous
  Country: US (occurrence: US)
  Receive Date: 20240530
  Receipt Date: 20240530
  Transmission Date: 20240716
  Serious: No
  Sender: FDA-Public Use
  Company Number: US-PFIZER INC-202400173485

PATIENT
  Age: 14 Year
  Sex: Female
  Weight: 45.36 kg

DRUGS (2)
  1. GENOTROPIN [Suspect]
     Active Substance: SOMATROPIN
     Indication: Short stature
     Dosage: 3.4 ONCE A DAY FOR 6 DAYS
     Dates: end: 20231031
  2. GENOTROPIN [Suspect]
     Active Substance: SOMATROPIN
     Indication: Growth hormone deficiency

REACTIONS (4)
  - Device leakage [Unknown]
  - Device difficult to use [Unknown]
  - Poor quality device used [Unknown]
  - Device mechanical issue [Unknown]
